FAERS Safety Report 22789858 (Version 5)
Quarter: 2024Q2

REPORT INFORMATION
  Report Type: Report from Study
  Country: CR (occurrence: CR)
  Receive Date: 20230804
  Receipt Date: 20240621
  Transmission Date: 20240716
  Serious: Yes (Hospitalization, Other)
  Sender: FDA-Public Use
  Company Number: CR-002147023-NVSC2023CR168717

PATIENT
  Age: 66 Year
  Sex: Female

DRUGS (4)
  1. TAFINLAR [Suspect]
     Active Substance: DABRAFENIB MESYLATE
     Indication: Lung neoplasm malignant
     Dosage: 150 MG, BID
     Route: 048
     Dates: start: 20230705
  2. TAFINLAR [Suspect]
     Active Substance: DABRAFENIB MESYLATE
     Dosage: 150 MG, BID
     Route: 048
     Dates: start: 20230714
  3. MEKINIST [Suspect]
     Active Substance: TRAMETINIB DIMETHYL SULFOXIDE
     Indication: Lung neoplasm malignant
     Dosage: UNK
     Route: 048
     Dates: start: 20230714
  4. CALCIUM [Concomitant]
     Active Substance: CALCIUM
     Indication: Product used for unknown indication
     Dosage: UNK
     Route: 065

REACTIONS (28)
  - Lip discolouration [Unknown]
  - Pallor [Unknown]
  - Pulmonary oedema [Unknown]
  - Oxygen saturation decreased [Unknown]
  - Cardiomegaly [Unknown]
  - Vomiting [Unknown]
  - Productive cough [Unknown]
  - Dizziness [Unknown]
  - Headache [Unknown]
  - Lung neoplasm malignant [Unknown]
  - Malignant neoplasm progression [Unknown]
  - Pneumonia [Unknown]
  - Onychoclasis [Unknown]
  - Dry mouth [Unknown]
  - Skin exfoliation [Unknown]
  - Weight decreased [Unknown]
  - Hunger [Unknown]
  - Dry skin [Unknown]
  - Malaise [Unknown]
  - Inflammation [Unknown]
  - Illness [Unknown]
  - Eye pain [Unknown]
  - Erythema [Unknown]
  - Ocular hyperaemia [Unknown]
  - Balance disorder [Unknown]
  - Pulse abnormal [Unknown]
  - Nasopharyngitis [Unknown]
  - Product dispensing issue [Unknown]

NARRATIVE: CASE EVENT DATE: 20230701
